FAERS Safety Report 5141286-8 (Version None)
Quarter: 2006Q4

REPORT INFORMATION
  Report Type: 
  Country: None (occurrence: None)
  Receive Date: 20061101
  Receipt Date: 20061023
  Transmission Date: 20070319
  Serious: Yes (Death)
  Sender: FDA-Public Use
  Company Number: AT-AVENTIS-200615403EU

PATIENT
  Age: 72 Year
  Sex: Female

DRUGS (17)
  1. LASIX [Suspect]
     Indication: DIURETIC THERAPY
     Dosage: DOSE: 20 MG/2ML
  2. LOVENOX [Suspect]
     Indication: ANTICOAGULANT THERAPY
     Route: 058
     Dates: start: 20051210, end: 20051212
  3. INHIBACE PLUS [Suspect]
     Indication: DIURETIC THERAPY
     Dates: start: 20051126, end: 20051223
  4. ZELDOX                             /01487002/ [Suspect]
     Dates: start: 20051221, end: 20051221
  5. ZELDOX                             /01487002/ [Suspect]
     Dates: start: 20051222, end: 20051223
  6. CIPRALEX                           /01588501/ [Concomitant]
     Dates: start: 20051221, end: 20051223
  7. CIPRALEX                           /01588501/ [Concomitant]
     Dates: end: 20051220
  8. LOVENOX [Concomitant]
     Route: 058
     Dates: start: 20051118, end: 20051209
  9. SEROQUEL [Concomitant]
     Dates: end: 20051118
  10. SEROQUEL [Concomitant]
     Dates: start: 20051219
  11. SEROQUEL [Concomitant]
     Dates: start: 20051220
  12. SEROQUEL [Concomitant]
     Dates: start: 20051221, end: 20051221
  13. TEMESTA                            /00273201/ [Concomitant]
     Dates: start: 20051201, end: 20051219
  14. TEMESTA                            /00273201/ [Concomitant]
     Dates: start: 20051220
  15. TEMESTA                            /00273201/ [Concomitant]
     Dates: start: 20051221, end: 20051223
  16. TYREX                              /00012201/ [Concomitant]
     Dates: end: 20051223
  17. TRITTICO [Concomitant]
     Dates: end: 20051223

REACTIONS (10)
  - CIRCULATORY COLLAPSE [None]
  - COR PULMONALE [None]
  - CYANOSIS [None]
  - DEATH [None]
  - DEHYDRATION [None]
  - EMPHYSEMA [None]
  - HEPATIC STEATOSIS [None]
  - OVARIAN CYST [None]
  - PULMONARY EMBOLISM [None]
  - UTERINE LEIOMYOMA [None]
